FAERS Safety Report 15488897 (Version 1)
Quarter: 2018Q4

REPORT INFORMATION
  Report Type: Spontaneous
  Country: BE (occurrence: BE)
  Receive Date: 20181011
  Receipt Date: 20181011
  Transmission Date: 20190205
  Serious: Yes (Other)
  Sender: FDA-Public Use
  Company Number: BE-PFIZER INC-2018402666

PATIENT
  Age: 50 Year
  Sex: Male

DRUGS (1)
  1. XANAX [Suspect]
     Active Substance: ALPRAZOLAM
     Dosage: 2 MG, SINGLE

REACTIONS (2)
  - Suicidal ideation [Unknown]
  - Prescription drug used without a prescription [Unknown]
